FAERS Safety Report 7478158-X (Version None)
Quarter: 2011Q2

REPORT INFORMATION
  Report Type: 
  Country: None (occurrence: None)
  Receive Date: 20110513
  Receipt Date: 20110429
  Transmission Date: 20111010
  Serious: Yes (Hospitalization)
  Sender: FDA-Public Use
  Company Number: US-JNJFOC-20110501415

PATIENT
  Sex: Male
  Weight: 48.9 kg

DRUGS (8)
  1. REMICADE [Suspect]
     Indication: INFLAMMATORY BOWEL DISEASE
     Route: 042
  2. CIMZIA [Suspect]
  3. AZATHIOPRINE [Suspect]
     Indication: PRODUCT USED FOR UNKNOWN INDICATION
  4. CIMZIA [Suspect]
     Indication: PRODUCT USED FOR UNKNOWN INDICATION
  5. ROWASA [Concomitant]
     Route: 054
  6. MESALAMINE [Concomitant]
  7. METRONIDAZOLE [Concomitant]
  8. PREDNISONE [Suspect]
     Indication: PRODUCT USED FOR UNKNOWN INDICATION

REACTIONS (1)
  - ANAL ABSCESS [None]
